FAERS Safety Report 5944479-2 (Version None)
Quarter: 2008Q4

REPORT INFORMATION
  Report Type: 
  Country: None (occurrence: None)
  Receive Date: 20081021
  Receipt Date: 20070914
  Transmission Date: 20090506
  Serious: Yes (Hospitalization, Other)
  Sender: FDA-Public Use
  Company Number: HQWYE028502FEB05

PATIENT
  Age: 62 Year
  Sex: Female
  Weight: 63.56 kg

DRUGS (6)
  1. PREMARIN [Suspect]
     Indication: HORMONE REPLACEMENT THERAPY
     Dosage: ORAL
     Route: 048
     Dates: start: 19940101, end: 19980101
  2. ESTRADIOL [Suspect]
  3. ESTRIOL (ESTRIOL, ) [Suspect]
  4. ESTRONE [Suspect]
  5. PROGESTERONE [Suspect]
  6. PROVERA [Suspect]
     Indication: HORMONE REPLACEMENT THERAPY
     Dates: start: 19840101, end: 19980101

REACTIONS (3)
  - BREAST CANCER [None]
  - DYSPNOEA [None]
  - PAIN [None]
